FAERS Safety Report 9056243 (Version 1)
Quarter: 2013Q1

REPORT INFORMATION
  Report Type: Spontaneous
  Country: DK (occurrence: DK)
  Receive Date: 20130205
  Receipt Date: 20130205
  Transmission Date: 20140127
  Serious: Yes (Hospitalization)
  Sender: FDA-Public Use
  Company Number: DK-TEVA-309511ISR

PATIENT
  Age: 62 None
  Sex: Male
  Weight: 108 kg

DRUGS (13)
  1. INNOHEP [Suspect]
     Indication: THROMBOSIS PROPHYLAXIS
     Dosage: TINZAPARIN INDUCTION/ MAINTENANCE CYCLE 4
     Route: 058
  2. DOXORUBICIN [Concomitant]
     Dosage: LIPOSOME INJECTION
     Route: 042
     Dates: start: 20111014
  3. DOXORUBICIN [Concomitant]
     Dosage: LIPOSOME INJECTION
     Route: 042
     Dates: start: 20111103
  4. DOXORUBICIN [Concomitant]
     Dosage: LIPOSOME INJECTION
     Route: 042
     Dates: start: 20111113
  5. NEUPOGEN [Concomitant]
     Indication: DIFFUSE LARGE B-CELL LYMPHOMA
     Dosage: 6 MG, UNK
     Route: 058
     Dates: start: 20111017
  6. PREDNISONE [Concomitant]
     Indication: DIFFUSE LARGE B-CELL LYMPHOMA
     Dosage: 100 MG, UNK
     Route: 048
     Dates: start: 20111014
  7. PREDNISONE [Concomitant]
     Dates: start: 20111103
  8. RITUXIMAB [Concomitant]
     Indication: DIFFUSE LARGE B-CELL LYMPHOMA
     Dosage: 750 MG, UNK
     Route: 042
     Dates: start: 20111014
  9. RITUXIMAB [Concomitant]
     Route: 042
     Dates: start: 20111103
  10. CYCLOPHOSPHAMIDE [Concomitant]
     Indication: DIFFUSE LARGE B-CELL LYMPHOMA
     Dosage: 1800 MG, UNK
     Route: 042
     Dates: start: 20111014
  11. CYCLOPHOSPHAMIDE [Concomitant]
     Route: 042
     Dates: start: 20111103
  12. VINCRISTINE [Concomitant]
     Indication: DIFFUSE LARGE B-CELL LYMPHOMA
     Dosage: 2 G, UNK
     Route: 042
     Dates: start: 20111014
  13. VINCRISTINE [Concomitant]
     Dates: start: 20111103

REACTIONS (1)
  - Thrombosis [Recovered/Resolved]
